FAERS Safety Report 10663050 (Version 1)
Quarter: 2014Q4

REPORT INFORMATION
  Report Type: Spontaneous
  Country: CH (occurrence: CH)
  Receive Date: 20141218
  Receipt Date: 20141218
  Transmission Date: 20150529
  Serious: Yes (Hospitalization)
  Sender: FDA-Public Use
  Company Number: CH-BAYER-2014-185679

PATIENT
  Age: 61 Year
  Sex: Female

DRUGS (7)
  1. ASPIRIN CARDIO [Suspect]
     Active Substance: ASPIRIN
     Indication: CORONARY ARTERY DISEASE
     Dosage: 100 MG, QD
     Route: 048
     Dates: start: 2014, end: 201411
  2. IRFEN [Suspect]
     Active Substance: IBUPROFEN
     Indication: ANALGESIC THERAPY
     Dosage: 400 MG, BID
     Route: 048
     Dates: start: 2014, end: 201411
  3. ATORVASTATIN [Concomitant]
     Active Substance: ATORVASTATIN
  4. CO DIOVAN [Concomitant]
  5. CONCOR [Concomitant]
     Active Substance: BISOPROLOL FUMARATE
  6. BECOZYM [Concomitant]
     Active Substance: VITAMINS
  7. ESOMEPRAZOLE [Concomitant]
     Active Substance: ESOMEPRAZOLE

REACTIONS (5)
  - Encephalopathy [Recovered/Resolved]
  - Upper gastrointestinal haemorrhage [Recovered/Resolved]
  - Haematemesis [Recovered/Resolved]
  - Haemorrhagic anaemia [Recovered/Resolved]
  - Nervous system disorder [Recovered/Resolved]

NARRATIVE: CASE EVENT DATE: 201411
